FAERS Safety Report 9372987 (Version 1)
Quarter: 2013Q2

REPORT INFORMATION
  Report Type: Spontaneous
  Country: FR (occurrence: FR)
  Receive Date: 20130627
  Receipt Date: 20130627
  Transmission Date: 20140414
  Serious: Yes (Hospitalization)
  Sender: FDA-Public Use
  Company Number: FR-BRISTOL-MYERS SQUIBB COMPANY-19029388

PATIENT
  Age: 72 Year
  Sex: Male

DRUGS (7)
  1. COUMADINE [Suspect]
     Route: 048
  2. KARDEGIC [Suspect]
     Dosage: POWDER FOR ORAL SOLUTION IN SACHETS
     Dates: end: 201305
  3. ALLOPURINOL [Concomitant]
  4. PRAVASTATINE [Concomitant]
  5. BISOPROLOL FUMARATE [Concomitant]
  6. ADANCOR [Concomitant]
     Dosage: TABLET
  7. NOVOMIX [Concomitant]
     Route: 058

REACTIONS (5)
  - Haematuria [Recovered/Resolved]
  - Anaemia [Not Recovered/Not Resolved]
  - Dysuria [Unknown]
  - Cystitis radiation [Unknown]
  - Urinary bladder haemorrhage [Unknown]
